FAERS Safety Report 16042262 (Version 1)
Quarter: 2019Q1

REPORT INFORMATION
  Report Type: Spontaneous
  Country: US (occurrence: US)
  Receive Date: 20190306
  Receipt Date: 20190306
  Transmission Date: 20190418
  Serious: No
  Sender: FDA-Public Use
  Company Number: US-AKORN PHARMACEUTICALS-2018AKN01014

PATIENT
  Age: 35 Year
  Sex: Female
  Weight: 48.98 kg

DRUGS (3)
  1. MYORISAN [Suspect]
     Active Substance: ISOTRETINOIN
     Indication: SCAR
     Dosage: UNK
     Dates: start: 2018, end: 20180517
  2. MYORISAN [Suspect]
     Active Substance: ISOTRETINOIN
     Indication: ACNE
     Dosage: 40 MG, 1X/DAY WITH MEALS
     Route: 048
     Dates: start: 20180213, end: 2018
  3. LEVONORGESTREL IUD [Concomitant]
     Dosage: UNK, AS DIRECTED

REACTIONS (7)
  - Pain [Unknown]
  - Myalgia [Unknown]
  - Blood triglycerides increased [Unknown]
  - Lipids increased [Unknown]
  - Headache [Unknown]
  - Off label use [Recovered/Resolved]
  - Back pain [Unknown]

NARRATIVE: CASE EVENT DATE: 2018
